FAERS Safety Report 7230721-7 (Version None)
Quarter: 2011Q1

REPORT INFORMATION
  Report Type: 
  Country: None (occurrence: None)
  Receive Date: 20110118
  Receipt Date: 20101123
  Transmission Date: 20110831
  Serious: Yes (Hospitalization, Other)
  Sender: FDA-Public Use
  Company Number: US-BAXTER-2008BH004256

PATIENT
  Age: 31 Year
  Sex: Female
  Weight: 88 kg

DRUGS (39)
  1. HEPARIN SODIUM INJECTION [Suspect]
     Route: 042
     Dates: start: 20070912, end: 20070912
  2. HEPARIN SODIUM INJECTION [Suspect]
     Route: 042
     Dates: start: 20080228, end: 20080228
  3. DIHYDROERGOTAMINE MESYLATE [Concomitant]
     Indication: MIGRAINE
     Route: 042
  4. STADOL [Concomitant]
     Indication: PRODUCT USED FOR UNKNOWN INDICATION
     Route: 065
  5. HEPARIN SODIUM INJECTION [Suspect]
     Route: 058
     Dates: start: 20080713, end: 20080714
  6. HEPARIN SODIUM INJECTION [Suspect]
     Route: 058
     Dates: start: 20080713, end: 20080714
  7. HEPARIN SODIUM INJECTION [Suspect]
     Route: 042
     Dates: start: 20071027, end: 20071027
  8. HEPARIN SODIUM INJECTION [Suspect]
     Route: 042
     Dates: start: 20080101, end: 20080101
  9. HEPARIN SODIUM 5,000 UNITS IN DEXTROSE 5% [Suspect]
     Indication: PRODUCT USED FOR UNKNOWN INDICATION
     Route: 042
     Dates: start: 20080125, end: 20080128
  10. LOVENOX [Concomitant]
     Indication: THROMBOSIS PROPHYLAXIS
     Route: 065
  11. MULTI-VITAMINS [Concomitant]
     Indication: PRODUCT USED FOR UNKNOWN INDICATION
     Route: 065
  12. HEPARIN SODIUM INJECTION [Suspect]
     Route: 042
     Dates: start: 20070912, end: 20070912
  13. HEPARIN SODIUM INJECTION [Suspect]
     Route: 042
     Dates: start: 20070209, end: 20070209
  14. HEPARIN SODIUM INJECTION [Suspect]
     Route: 042
     Dates: start: 20070801, end: 20070807
  15. HEPARIN SODIUM INJECTION [Suspect]
     Route: 042
     Dates: start: 20071027, end: 20071027
  16. HEPARIN SODIUM INJECTION [Suspect]
     Route: 042
     Dates: start: 20080101, end: 20080101
  17. HEPARIN SODIUM INJECTION [Suspect]
     Route: 042
     Dates: start: 20080228, end: 20080228
  18. HEPARIN SODIUM 1,000 UNITS AND SODIUM CHLORIDE 0.9% [Suspect]
     Indication: PRODUCT USED FOR UNKNOWN INDICATION
     Route: 042
     Dates: start: 20071210, end: 20080301
  19. VITAMIN B-12 [Concomitant]
     Indication: PRODUCT USED FOR UNKNOWN INDICATION
     Route: 065
  20. AMBIEN [Concomitant]
     Indication: INSOMNIA
     Route: 048
  21. HEPARIN SODIUM INJECTION [Suspect]
     Indication: CENTRAL VENOUS CATHETERISATION
     Route: 042
     Dates: start: 20060901, end: 20080301
  22. HEPARIN SODIUM INJECTION [Suspect]
     Route: 042
     Dates: start: 20070210, end: 20070210
  23. HEPARIN SODIUM INJECTION [Suspect]
     Route: 042
     Dates: start: 20070421, end: 20070421
  24. HEPARIN SODIUM INJECTION [Suspect]
     Route: 042
     Dates: start: 20070801, end: 20070807
  25. HEPARIN SODIUM INJECTION [Suspect]
     Indication: ANGIOPLASTY
     Route: 042
     Dates: start: 20060901, end: 20080301
  26. HEPARIN SODIUM INJECTION [Suspect]
     Route: 042
     Dates: start: 20070420, end: 20070420
  27. PHENERGAN [Concomitant]
     Indication: PRODUCT USED FOR UNKNOWN INDICATION
     Route: 048
  28. VALIUM [Concomitant]
     Indication: PRODUCT USED FOR UNKNOWN INDICATION
     Route: 048
  29. OXYCONTIN [Concomitant]
     Indication: PRODUCT USED FOR UNKNOWN INDICATION
     Route: 048
  30. HEPARIN SODIUM INJECTION [Suspect]
     Route: 042
     Dates: start: 20070209, end: 20070209
  31. HEPARIN SODIUM INJECTION [Suspect]
     Route: 042
     Dates: start: 20070210, end: 20070210
  32. HYDROCODONE [Concomitant]
     Indication: PRODUCT USED FOR UNKNOWN INDICATION
     Route: 065
  33. REGLAN [Concomitant]
     Indication: MIGRAINE
     Route: 042
  34. HEPARIN SODIUM INJECTION [Suspect]
     Route: 042
     Dates: start: 20070420, end: 20070420
  35. HEPARIN SODIUM INJECTION [Suspect]
     Route: 042
     Dates: start: 20070421, end: 20070421
  36. METOPROLOL [Concomitant]
     Indication: PRODUCT USED FOR UNKNOWN INDICATION
     Route: 048
  37. LORTAB [Concomitant]
     Indication: PRODUCT USED FOR UNKNOWN INDICATION
     Route: 065
  38. WARFARIN SODIUM [Concomitant]
     Indication: PRODUCT USED FOR UNKNOWN INDICATION
     Route: 065
  39. SOMA [Concomitant]
     Indication: PRODUCT USED FOR UNKNOWN INDICATION
     Route: 065

REACTIONS (30)
  - DEEP VEIN THROMBOSIS [None]
  - INJECTION SITE RASH [None]
  - SEPSIS [None]
  - WOUND DEHISCENCE [None]
  - BACK PAIN [None]
  - VENA CAVA THROMBOSIS [None]
  - SUPERIOR VENA CAVAL STENOSIS [None]
  - HAEMATEMESIS [None]
  - HYPOTENSION [None]
  - FULL BLOOD COUNT DECREASED [None]
  - PAIN [None]
  - THROMBOSIS [None]
  - JOINT DISLOCATION [None]
  - CATHETER SITE INFECTION [None]
  - FLUSHING [None]
  - PALPITATIONS [None]
  - VISUAL ACUITY REDUCED TRANSIENTLY [None]
  - CHEST PAIN [None]
  - INJECTION SITE IRRITATION [None]
  - RASH [None]
  - EPISTAXIS [None]
  - BREAST MASS [None]
  - EMBOLISM ARTERIAL [None]
  - HAEMOGLOBIN DECREASED [None]
  - DYSGEUSIA [None]
  - STAPHYLOCOCCAL INFECTION [None]
  - THROMBOSIS IN DEVICE [None]
  - TINNITUS [None]
  - CELLULITIS [None]
  - RECTAL HAEMORRHAGE [None]
